FAERS Safety Report 6287538-X (Version None)
Quarter: 2009Q3

REPORT INFORMATION
  Report Type: 
  Country: None (occurrence: None)
  Receive Date: 20090727
  Receipt Date: 20090714
  Transmission Date: 20100115
  Serious: Yes (Other)
  Sender: FDA-Public Use
  Company Number: CLOF-1000631

PATIENT

DRUGS (8)
  1. CLOLAR [Suspect]
     Indication: LEUKAEMIA
     Dosage: 40 MG/M2, QDX5, INTRAVENOUS
     Route: 042
  2. CYTARABINE [Suspect]
     Indication: LEUKAEMIA
     Dosage: 1 G/M2, QDX5, INTRAVENOUS
     Route: 042
  3. ATG (ANTITHYMOCYTE IMMUNOGLOBULIN (RABBIT)) [Suspect]
     Indication: LEUKAEMIA
     Dosage: 1 MG/KG, ONCE, INTRAVENOUS; 2.5 MG/KG, QDX2, INTRAVENOUS
     Route: 042
  4. G-CSF (GRANULOCYTE COLONY STIMULATING FACTOR) [Concomitant]
  5. TACROLIMUS [Concomitant]
  6. METHOTREXATE [Concomitant]
  7. ANTIVIRALS NOS [Concomitant]
  8. ANTIFUNGALS [Concomitant]

REACTIONS (15)
  - ALANINE AMINOTRANSFERASE INCREASED [None]
  - ANAEMIA [None]
  - ASPARTATE AMINOTRANSFERASE INCREASED [None]
  - BACTERAEMIA [None]
  - CHIMERISM [None]
  - CLOSTRIDIUM DIFFICILE COLITIS [None]
  - CYTOMEGALOVIRUS INFECTION [None]
  - DIARRHOEA [None]
  - DYSPNOEA [None]
  - FEBRILE NEUTROPENIA [None]
  - HYPERBILIRUBINAEMIA [None]
  - MUCOSAL INFLAMMATION [None]
  - NEUTROPENIA [None]
  - PALMAR-PLANTAR ERYTHRODYSAESTHESIA SYNDROME [None]
  - THROMBOCYTOPENIA [None]
